FAERS Safety Report 17807996 (Version 1)
Quarter: 2020Q2

REPORT INFORMATION
  Report Type: Report from Study
  Country: LB (occurrence: LB)
  Receive Date: 20200520
  Receipt Date: 20200520
  Transmission Date: 20200714
  Serious: Yes (Other)
  Sender: FDA-Public Use
  Company Number: NVSC2020LB137627

PATIENT
  Sex: Female
  Weight: 67 kg

DRUGS (4)
  1. JADENU [Suspect]
     Active Substance: DEFERASIROX
     Indication: THALASSAEMIA
     Dosage: 360 MG
     Route: 048
  2. PROFINAL [Concomitant]
     Indication: PAIN
     Dosage: UNK UNK, PRN
     Route: 065
  3. JADENU [Suspect]
     Active Substance: DEFERASIROX
     Dosage: 180 MG
     Route: 048
  4. ZALDIAR [Concomitant]
     Active Substance: ACETAMINOPHEN\TRAMADOL HYDROCHLORIDE
     Indication: PAIN
     Dosage: UNK UNK, PRN
     Route: 065

REACTIONS (2)
  - Osteoporosis [Unknown]
  - Lumbar vertebral fracture [Not Recovered/Not Resolved]
